FAERS Safety Report 9123179 (Version 2)
Quarter: 2013Q1

REPORT INFORMATION
  Report Type: Spontaneous
  Country: US (occurrence: None)
  Receive Date: 20130131
  Receipt Date: 20130312
  Transmission Date: 20140127
  Serious: No
  Sender: FDA-Public Use
  Company Number: 1576494

PATIENT
  Sex: Female

DRUGS (1)
  1. MARCAINE [Suspect]
     Indication: NERVE BLOCK
     Dosage: 5 CC ON EACH LEG
     Dates: start: 20121120

REACTIONS (1)
  - Cellulitis [None]
